FAERS Safety Report 16359839 (Version 1)
Quarter: 2019Q2

REPORT INFORMATION
  Report Type: Spontaneous
  Country: US (occurrence: US)
  Receive Date: 20190419
  Receipt Date: 20190419
  Transmission Date: 20190711
  Serious: Yes (Disabling)
  Sender: FDA-Public Use
  Company Number: None

PATIENT
  Age: 48 Year
  Sex: Female
  Weight: 67.13 kg

DRUGS (4)
  1. LEVOTHRYOXIN [Concomitant]
  2. MAGNESIUM SUPPLEMENT [Concomitant]
  3. CLONOPIN [Concomitant]
     Active Substance: CLONAZEPAM
  4. CIPROFLOXACIN. [Suspect]
     Active Substance: CIPROFLOXACIN
     Indication: COLITIS
     Dates: start: 20190411, end: 20190413

REACTIONS (3)
  - Gait disturbance [None]
  - Paraesthesia [None]
  - Hypoaesthesia [None]

NARRATIVE: CASE EVENT DATE: 20190411
